FAERS Safety Report 17679636 (Version 2)
Quarter: 2020Q2

REPORT INFORMATION
  Report Type: Spontaneous
  Country: US (occurrence: US)
  Receive Date: 20200417
  Receipt Date: 20200505
  Transmission Date: 20200714
  Serious: Yes (Other)
  Sender: FDA-Public Use
  Company Number: NVSC2020US099917

PATIENT
  Age: 70 Year
  Sex: Female

DRUGS (3)
  1. BEOVU [Suspect]
     Active Substance: BROLUCIZUMAB-DBLL
     Indication: NEOVASCULAR AGE-RELATED MACULAR DEGENERATION
     Dosage: 6 MG, QMO
     Route: 031
     Dates: start: 20191022
  2. BEOVU [Suspect]
     Active Substance: BROLUCIZUMAB-DBLL
     Dosage: 6 MG, QMO
     Route: 031
     Dates: start: 20191126
  3. BEOVU [Suspect]
     Active Substance: BROLUCIZUMAB-DBLL
     Dosage: 6 MG, QMO
     Route: 031
     Dates: start: 20191227, end: 20200207

REACTIONS (4)
  - Eye pain [Unknown]
  - Vitreous floaters [Unknown]
  - Uveitis [Recovering/Resolving]
  - Vitreal cells [Unknown]

NARRATIVE: CASE EVENT DATE: 20200207
